FAERS Safety Report 25096028 (Version 8)
Quarter: 2025Q4

REPORT INFORMATION
  Report Type: Spontaneous
  Country: US (occurrence: US)
  Receive Date: 20250319
  Receipt Date: 20251201
  Transmission Date: 20260118
  Serious: Yes (Other)
  Sender: MERCK SHARP & DOHME LLC
  Company Number: US-009507513-2262766

PATIENT
  Age: 64 Year
  Sex: Female
  Weight: 78.925 kg

DRUGS (36)
  1. WINREVAIR [Suspect]
     Active Substance: SOTATERCEPT-CSRK
  2. WINREVAIR [Suspect]
     Active Substance: SOTATERCEPT-CSRK
  3. WINREVAIR [Suspect]
     Active Substance: SOTATERCEPT-CSRK
  4. WINREVAIR [Suspect]
     Active Substance: SOTATERCEPT-CSRK
  5. REMODULIN [Suspect]
     Active Substance: TREPROSTINIL
     Indication: Pulmonary arterial hypertension
     Dosage: 0.019 UG/KG (SELF-FILL WITH 1.7 ML PER CASSETTE; RATE 17 MCL PER HOUR), CONTINUOUS
     Route: 058
  6. REMODULIN [Suspect]
     Active Substance: TREPROSTINIL
     Indication: Pulmonary arterial hypertension
     Dosage: 0.031  G/KG (SELF-FILLED CASSETTE WITH 2.5 ML, RATE OF 28 MCL/HOUR), CONTINUOUS
     Route: 058
     Dates: start: 20240508
  7. REMODULIN [Suspect]
     Active Substance: TREPROSTINIL
     Indication: Pulmonary arterial hypertension
     Dosage: 0.027  G/KG (SELF-FILL WITH 2.2 ML PER CASSETTE; RATE 24 MCL PER HOUR), CONTINUOUS
     Route: 058
  8. REMODULIN [Suspect]
     Active Substance: TREPROSTINIL
     Indication: Pulmonary arterial hypertension
     Dosage: 0.019 UG/KG (SELF-FILL WITH 2.9 ML PER CASSETTE; RATE 34 MCL PER HOUR), CONTINUOUS
     Route: 058
  9. REMODULIN [Suspect]
     Active Substance: TREPROSTINIL
     Indication: Pulmonary arterial hypertension
     Dosage: SELF-FILL CASSETTE WITH 2.7 ML; RATE OF 30 MCL/HR; CONTINUOUS
     Route: 058
  10. LECITHIN [Concomitant]
     Active Substance: LECITHIN
  11. ALBUTEROL SULFATE [Concomitant]
     Active Substance: ALBUTEROL SULFATE
  12. POTASSIUM [Concomitant]
     Active Substance: POTASSIUM
  13. TRAMADOL HCL [Concomitant]
     Active Substance: TRAMADOL HYDROCHLORIDE
  14. CLONIDINE HYDROCHLORIDE [Concomitant]
     Active Substance: CLONIDINE HYDROCHLORIDE
  15. KETOPROFEN [Concomitant]
     Active Substance: KETOPROFEN
  16. OXYGEN [Concomitant]
     Active Substance: OXYGEN
  17. LIDOCAINE HYDROCHLORIDE [Concomitant]
     Active Substance: LIDOCAINE HYDROCHLORIDE
  18. ONDANSETRON HYDROCHLORIDE [Concomitant]
     Active Substance: ONDANSETRON HYDROCHLORIDE
  19. LUNESTA [Concomitant]
     Active Substance: ESZOPICLONE
  20. AMITRIPTYLINE HYDROCHLORIDE [Concomitant]
     Active Substance: AMITRIPTYLINE HYDROCHLORIDE
  21. POLOXAMER [Concomitant]
     Active Substance: POLOXAMER
  22. ESZOPICLONE [Concomitant]
     Active Substance: ESZOPICLONE
  23. TORSEMIDE [Concomitant]
     Active Substance: TORSEMIDE
  24. MOTRIN IB [Concomitant]
     Active Substance: IBUPROFEN
  25. MELOXICAM [Concomitant]
     Active Substance: MELOXICAM
  26. VALACYCLOVIR [Concomitant]
     Active Substance: VALACYCLOVIR HYDROCHLORIDE
  27. METHOCARBAMOL [Concomitant]
     Active Substance: METHOCARBAMOL
  28. TRAZODONE HCL [Concomitant]
     Active Substance: TRAZODONE HYDROCHLORIDE
  29. MACITENTAN\TADALAFIL [Concomitant]
     Active Substance: MACITENTAN\TADALAFIL
  30. ACETAMINOPHEN\HYDROCODONE BITARTRATE [Concomitant]
     Active Substance: ACETAMINOPHEN\HYDROCODONE BITARTRATE
  31. TYLENOL EXTRA STRENGTH [Concomitant]
     Active Substance: ACETAMINOPHEN
  32. SODIUM CHLORIDE [Concomitant]
     Active Substance: SODIUM CHLORIDE
  33. PREVALITE [Concomitant]
     Active Substance: CHOLESTYRAMINE
  34. KETAMINE HYDROCHLORIDE [Concomitant]
     Active Substance: KETAMINE HYDROCHLORIDE
  35. D 400 (Colecalciferol) [Concomitant]
  36. Potassium chloride, Sodium chloride [Concomitant]

REACTIONS (10)
  - Pancreatitis [Unknown]
  - Pain in jaw [Recovering/Resolving]
  - Haemorrhage [Unknown]
  - Injection site bruising [Unknown]
  - Diarrhoea [Recovering/Resolving]
  - Migraine [Recovering/Resolving]
  - Nausea [Recovering/Resolving]
  - Myalgia [Unknown]
  - Rash pruritic [Unknown]
  - Pruritus [Unknown]

NARRATIVE: CASE EVENT DATE: 20250913
